FAERS Safety Report 4502479-3 (Version None)
Quarter: 2004Q3

REPORT INFORMATION
  Report Type: 
  Country: None (occurrence: None)
  Receive Date: 20040928
  Receipt Date: 20040708
  Transmission Date: 20050211
  Serious: No
  Sender: FDA-Public Use
  Company Number: 04P-163-0266580-00

PATIENT
  Age: 36 Year
  Sex: Female
  Weight: 58.9676 kg

DRUGS (13)
  1. HUMIRA [Suspect]
     Indication: CROHN'S DISEASE
     Dosage: 40 MG, 1 IN 1 WK, SUBCUTANEOUS
     Route: 058
     Dates: start: 20040501
  2. METHOTREXATE SODIUM [Concomitant]
  3. VICODIN [Concomitant]
  4. HYOSCINE METHOBROMIDE [Concomitant]
  5. YASMINE [Concomitant]
  6. BUPROPION HYDROCHLORIDE [Concomitant]
  7. IRON SLOW FE [Concomitant]
  8. RABEPRAZOLE SODIUM [Concomitant]
  9. ALPRAZOLAM [Concomitant]
  10. MULTI-VITAMINS [Concomitant]
  11. MULTIMINERALS [Concomitant]
  12. CALCIUM [Concomitant]
  13. MESALAMINE [Concomitant]

REACTIONS (1)
  - INJECTION SITE BURNING [None]
